FAERS Safety Report 19303582 (Version 1)
Quarter: 2021Q2

REPORT INFORMATION
  Report Type: Spontaneous
  Country: CA (occurrence: CA)
  Receive Date: 20210525
  Receipt Date: 20210525
  Transmission Date: 20210717
  Serious: Yes (Other)
  Sender: FDA-Public Use
  Company Number: CA-TEVA-2021-CA-1913712

PATIENT
  Age: 84 Year
  Sex: Male

DRUGS (2)
  1. QUETIAPINE FUMARATE. [Suspect]
     Active Substance: QUETIAPINE FUMARATE
     Indication: PRODUCT USED FOR UNKNOWN INDICATION
     Dosage: 200 MILLIGRAM DAILY;
     Route: 048
  2. DONEPEZIL. [Suspect]
     Active Substance: DONEPEZIL
     Indication: GOUT
     Route: 065

REACTIONS (6)
  - Sedation complication [Unknown]
  - Unresponsive to stimuli [Unknown]
  - Off label use [Unknown]
  - Muscle rigidity [Unknown]
  - Fall [Unknown]
  - Somnolence [Unknown]
